FAERS Safety Report 12595307 (Version 2)
Quarter: 2016Q4

REPORT INFORMATION
  Report Type: Spontaneous
  Country: AU (occurrence: AU)
  Receive Date: 20160727
  Receipt Date: 20161108
  Transmission Date: 20170207
  Serious: Yes (Hospitalization, Other)
  Sender: FDA-Public Use
  Company Number: AU-AMGEN-AUSSP2016095762

PATIENT
  Age: 53 Year
  Sex: Female
  Weight: 102.6 kg

DRUGS (6)
  1. NEULASTA [Suspect]
     Active Substance: PEGFILGRASTIM
     Indication: PROPHYLAXIS
     Dosage: 6 MG, Q3WK
     Route: 058
     Dates: start: 20160713
  2. 5-FU [Concomitant]
     Active Substance: FLUOROURACIL
     Indication: BREAST CANCER
     Dosage: UNK
     Dates: start: 20160712
  3. DOCETAXEL. [Suspect]
     Active Substance: DOCETAXEL
     Dosage: 150 MG, UNK
     Route: 042
     Dates: start: 2016
  4. EPIRUBICIN [Concomitant]
     Active Substance: EPIRUBICIN
     Indication: BREAST CANCER
     Dosage: UNK
     Dates: start: 20160712
  5. DOCETAXEL. [Suspect]
     Active Substance: DOCETAXEL
     Indication: BREAST CANCER
     Dosage: 200 MG, Q3WK
     Route: 042
     Dates: start: 20160712
  6. CYCLOPHOSPHAMIDE. [Concomitant]
     Active Substance: CYCLOPHOSPHAMIDE
     Indication: BREAST CANCER
     Dosage: UNK
     Dates: start: 20160712

REACTIONS (17)
  - White blood cell disorder [Unknown]
  - C-reactive protein increased [Unknown]
  - Lymphocyte count decreased [Unknown]
  - Gamma-glutamyltransferase increased [Unknown]
  - Aspartate aminotransferase increased [Unknown]
  - Haemoglobin decreased [Unknown]
  - Blood albumin decreased [Unknown]
  - Febrile neutropenia [Recovered/Resolved]
  - Red blood cell count decreased [Unknown]
  - Blood bicarbonate decreased [Unknown]
  - Alanine aminotransferase increased [Unknown]
  - Haematocrit decreased [Unknown]
  - Monocyte count decreased [Unknown]
  - Red cell distribution width increased [Unknown]
  - Platelet count decreased [Unknown]
  - Neutrophil count abnormal [Unknown]
  - Blood urea decreased [Unknown]

NARRATIVE: CASE EVENT DATE: 20160716
